FAERS Safety Report 6422169-X (Version None)
Quarter: 2009Q4

REPORT INFORMATION
  Report Type: 
  Country: None (occurrence: None)
  Receive Date: 20091030
  Receipt Date: 20091016
  Transmission Date: 20100525
  Serious: No
  Sender: FDA-Public Use
  Company Number: PHEH2009US14333

PATIENT
  Sex: Male

DRUGS (9)
  1. TASIGNA [Suspect]
     Indication: ACUTE MYELOID LEUKAEMIA
     Dosage: 400 MG, Q12H
     Route: 048
     Dates: start: 20090101
  2. PREVACID [Concomitant]
  3. NEXIUM [Concomitant]
  4. ALLOPURINOL [Concomitant]
  5. KLOR-CON [Concomitant]
  6. FUROSEMIDE [Concomitant]
  7. TRIAMTERENE AND HYDROCHLOROTHIAZID ^HARRIS^ [Concomitant]
  8. LISINOPRIL [Concomitant]
  9. LIPITOR [Concomitant]

REACTIONS (6)
  - BACK PAIN [None]
  - CARDIAC ENZYMES INCREASED [None]
  - CHEST PAIN [None]
  - DISCOMFORT [None]
  - HEADACHE [None]
  - PAIN IN EXTREMITY [None]
